FAERS Safety Report 6354182-5 (Version None)
Quarter: 2009Q3

REPORT INFORMATION
  Report Type: 
  Country: None (occurrence: None)
  Receive Date: 20090909
  Receipt Date: 20090903
  Transmission Date: 20100115
  Serious: Yes (Death, Other)
  Sender: FDA-Public Use
  Company Number: 2009US003361

PATIENT
  Age: 42 Year
  Sex: Male

DRUGS (3)
  1. PROGRAF [Suspect]
     Indication: LIVER TRANSPLANT
  2. MYCOPHENOLATE MOFETIL [Suspect]
     Indication: LIVER TRANSPLANT
  3. CORTICOSTEROID NOS(CORTICOSTEROID NOS) [Suspect]
     Indication: LIVER TRANSPLANT

REACTIONS (5)
  - CHOLESTASIS [None]
  - CYTOMEGALOVIRUS HEPATITIS [None]
  - FUNGAEMIA [None]
  - GASTROENTERITIS VIRAL [None]
  - LIVER TRANSPLANT REJECTION [None]
